FAERS Safety Report 9421469 (Version 1)
Quarter: 2013Q3

REPORT INFORMATION
  Report Type: Report from Study
  Country: FR (occurrence: FR)
  Receive Date: 20130726
  Receipt Date: 20130726
  Transmission Date: 20140515
  Serious: Yes (Death, Other)
  Sender: FDA-Public Use
  Company Number: FR-ROCHE-630150

PATIENT
  Sex: 0

DRUGS (4)
  1. TRETINOIN [Suspect]
     Indication: ACUTE MYELOID LEUKAEMIA
     Dosage: DAY 8-28.
     Route: 048
  2. AZACITIDINE [Suspect]
     Indication: ACUTE MYELOID LEUKAEMIA
     Dosage: DRUG NAME: 5-AZACITIDINE; DAY 1- 7.
     Route: 058
  3. VALPROIC ACID [Suspect]
     Indication: ACUTE MYELOID LEUKAEMIA
     Dosage: INCREASED IF WELL TOLERATED; DAY 1-7
     Route: 048
  4. VALPROIC ACID [Suspect]
     Dosage: INCREASED IF WELL TOLERATED; DAY 1-7
     Route: 048

REACTIONS (3)
  - Disease progression [Fatal]
  - Malignant neoplasm progression [Unknown]
  - Toxicity to various agents [Unknown]
